FAERS Safety Report 16946055 (Version 1)
Quarter: 2019Q4

REPORT INFORMATION
  Report Type: Spontaneous
  Country: US (occurrence: US)
  Receive Date: 20190830
  Receipt Date: 20190830
  Transmission Date: 20200122
  Serious: Yes (Hospitalization)
  Sender: FDA-Public Use
  Company Number: None

PATIENT
  Age: 46 Year
  Sex: Female

DRUGS (24)
  1. HYDROXYZ HCL [Concomitant]
     Active Substance: HYDROXYZINE HYDROCHLORIDE
  2. BUMEX [Concomitant]
     Active Substance: BUMETANIDE
  3. B12 COMPLIANCE KIT [Concomitant]
  4. LEVOTHYROXIN [Concomitant]
     Active Substance: LEVOTHYROXINE
  5. ELIQUIS [Concomitant]
     Active Substance: APIXABAN
  6. VITIAINB [Concomitant]
  7. VENTOLIN [Concomitant]
     Active Substance: ALBUTEROL SULFATE
  8. XOLAIR HIZENTRA [Concomitant]
  9. ZYRTEC [Concomitant]
     Active Substance: CETIRIZINE HYDROCHLORIDE
  10. TRAZODONE [Concomitant]
     Active Substance: TRAZODONE HYDROCHLORIDE
  11. SEROQUEL [Concomitant]
     Active Substance: QUETIAPINE FUMARATE
  12. MAGNESIUM [Concomitant]
     Active Substance: MAGNESIUM
  13. LYRICA [Concomitant]
     Active Substance: PREGABALIN
  14. WELLBUTRIN [Concomitant]
     Active Substance: BUPROPION HYDROCHLORIDE
  15. VITAMIN E [Concomitant]
     Active Substance: .ALPHA.-TOCOPHEROL
  16. SINGULAIR [Concomitant]
     Active Substance: MONTELUKAST SODIUM
  17. POTASSIUM [Concomitant]
     Active Substance: POTASSIUM
  18. LIOTHYRONINE [Concomitant]
     Active Substance: LIOTHYRONINE
  19. ALLEGRA-D [Concomitant]
     Active Substance: FEXOFENADINE\PSEUDOEPHEDRINE
  20. VITAMIND [Concomitant]
  21. IMURAN [Concomitant]
     Active Substance: AZATHIOPRINE
  22. ATENOLOL. [Concomitant]
     Active Substance: ATENOLOL
  23. VITAMIN C [Concomitant]
     Active Substance: ASCORBIC ACID
  24. XOLAIR [Suspect]
     Active Substance: OMALIZUMAB
     Indication: IMMUNODEFICIENCY
     Route: 058
     Dates: start: 20161202

REACTIONS (2)
  - Therapy cessation [None]
  - Femur fracture [None]
